FAERS Safety Report 6603908-1 (Version None)
Quarter: 2010Q1

REPORT INFORMATION
  Report Type: 
  Country: None (occurrence: None)
  Receive Date: 20100226
  Receipt Date: 20090306
  Transmission Date: 20100710
  Serious: No
  Sender: FDA-Public Use
  Company Number: A0773074A

PATIENT
  Sex: Female

DRUGS (2)
  1. LAMOTRIGINE [Suspect]
     Indication: DEPRESSION
     Route: 048
  2. EFFEXOR [Concomitant]
     Indication: DEPRESSION

REACTIONS (1)
  - DRUG INEFFECTIVE [None]
